FAERS Safety Report 9552074 (Version 1)
Quarter: 2013Q3

REPORT INFORMATION
  Report Type: Report from Study
  Country: BR (occurrence: BR)
  Receive Date: 20130925
  Receipt Date: 20130925
  Transmission Date: 20140515
  Serious: Yes (Other)
  Sender: FDA-Public Use
  Company Number: PHHY2013BR104719

PATIENT
  Age: 55 Year
  Sex: Male
  Weight: 72 kg

DRUGS (4)
  1. INDACATEROL [Suspect]
     Indication: CHRONIC OBSTRUCTIVE PULMONARY DISEASE
     Dosage: 300 MG, PER DAY
  2. INFLUENZA VIRUS VACC SEASONAL INN [Suspect]
     Indication: IMMUNISATION
     Dosage: 1 DF
     Dates: start: 201304
  3. ALBUTEROL [Concomitant]
     Dosage: UNK UKN, UNK
  4. N ACETYL CYSTEIN [Concomitant]
     Dosage: 1200 MG, UNK

REACTIONS (6)
  - Influenza [Recovering/Resolving]
  - Dyspnoea [Recovering/Resolving]
  - Sputum discoloured [Recovering/Resolving]
  - Snoring [Recovering/Resolving]
  - Cough [Recovering/Resolving]
  - Vaccination failure [Recovering/Resolving]
